FAERS Safety Report 23606821 (Version 6)
Quarter: 2024Q3

REPORT INFORMATION
  Report Type: Spontaneous
  Country: IL (occurrence: IL)
  Receive Date: 20240307
  Receipt Date: 20240705
  Transmission Date: 20241017
  Serious: Yes (Death, Life-Threatening, Hospitalization, Other)
  Sender: GILEAD
  Company Number: IL-GILEAD-2024-0661194

PATIENT
  Age: 72 Year
  Sex: Female

DRUGS (6)
  1. YESCARTA [Suspect]
     Active Substance: AXICABTAGENE CILOLEUCEL
     Indication: Neoplasm malignant
     Dosage: UNK
     Route: 042
     Dates: start: 20240124, end: 20240124
  2. ATORVASTATIN [Concomitant]
     Active Substance: ATORVASTATIN
  3. BISOPROLOL [Concomitant]
     Active Substance: BISOPROLOL\BISOPROLOL FUMARATE
  4. CIPRALEX [Concomitant]
     Active Substance: ESCITALOPRAM OXALATE
  5. METFORMIN [Concomitant]
     Active Substance: METFORMIN HYDROCHLORIDE
  6. OMEPRAZOLE [Concomitant]
     Active Substance: OMEPRAZOLE

REACTIONS (8)
  - Immune effector cell-associated neurotoxicity syndrome [Fatal]
  - Death [Fatal]
  - Cytokine release syndrome [Recovered/Resolved]
  - Atrial fibrillation [Recovered/Resolved]
  - Infection [Not Recovered/Not Resolved]
  - Herpes simplex test positive [Recovered/Resolved]
  - Cytomegalovirus infection reactivation [Not Recovered/Not Resolved]
  - Fungal test positive [Unknown]

NARRATIVE: CASE EVENT DATE: 20240127
